FAERS Safety Report 7554694-2 (Version None)
Quarter: 2011Q2

REPORT INFORMATION
  Report Type: 
  Country: None (occurrence: None)
  Receive Date: 20110617
  Receipt Date: 20110611
  Transmission Date: 20111010
  Serious: Yes (Other)
  Sender: FDA-Public Use
  Company Number: US-PFIZER INC-2011128622

PATIENT
  Age: 72 Year
  Sex: Female

DRUGS (1)
  1. FLAGYL [Suspect]
     Indication: AMOEBIASIS
     Dosage: 2 X 6 DAYS THERAPY WITH INTERVAL OF 4 WEEKS APART

REACTIONS (1)
  - POLYNEUROPATHY [None]
